FAERS Safety Report 18713523 (Version 2)
Quarter: 2021Q1

REPORT INFORMATION
  Report Type: Spontaneous
  Country: US (occurrence: US)
  Receive Date: 20210107
  Receipt Date: 20210219
  Transmission Date: 20210419
  Serious: No
  Sender: FDA-Public Use
  Company Number: US-ASTRAZENECA-2020SF70500

PATIENT
  Age: 27976 Day
  Sex: Male
  Weight: 63.5 kg

DRUGS (5)
  1. LONG ACTING INSULIN [Concomitant]
     Active Substance: INSULIN NOS
  2. HUMALOG [Concomitant]
     Active Substance: INSULIN LISPRO
     Indication: BLOOD GLUCOSE ABNORMAL
  3. FAST ACTING INSULIN [Concomitant]
  4. LANTUS [Concomitant]
     Active Substance: INSULIN GLARGINE
     Indication: BLOOD GLUCOSE ABNORMAL
  5. BYDUREON BCISE [Suspect]
     Active Substance: EXENATIDE
     Indication: TYPE 2 DIABETES MELLITUS
     Route: 065
     Dates: start: 20210102

REACTIONS (5)
  - Blood glucose increased [Recovered/Resolved]
  - Device malfunction [Recovered/Resolved]
  - Incorrect dose administered by device [Unknown]
  - Scar [Unknown]
  - Wrong technique in device usage process [Unknown]

NARRATIVE: CASE EVENT DATE: 20210103
